FAERS Safety Report 4745949-5 (Version None)
Quarter: 2005Q3

REPORT INFORMATION
  Report Type: 
  Country: None (occurrence: None)
  Receive Date: 20050816
  Receipt Date: 20050808
  Transmission Date: 20060218
  Serious: Yes (Congenital Anomaly)
  Sender: FDA-Public Use
  Company Number: NL-GLAXOSMITHKLINE-B0390685A

PATIENT
  Sex: Male

DRUGS (4)
  1. SALMETEROL XINAFOATE [Suspect]
     Indication: DRUG USE FOR UNKNOWN INDICATION
     Dosage: 50MCG UNKNOWN
     Dates: start: 19980101
  2. FLIXOTIDE [Concomitant]
     Dates: end: 20040115
  3. CETIRIZINE DIHYDROCHLORIDE [Concomitant]
     Dosage: 10MG PER DAY
     Dates: end: 20040101
  4. BECLOMETHASONE DIPROPIONATE [Concomitant]
     Dates: start: 20050101

REACTIONS (2)
  - CLEFT PALATE [None]
  - DRUG EXPOSURE DURING PREGNANCY [None]
